FAERS Safety Report 9801810 (Version 1)
Quarter: 2014Q1

REPORT INFORMATION
  Report Type: Report from Study
  Country: MX (occurrence: MX)
  Receive Date: 20140107
  Receipt Date: 20140107
  Transmission Date: 20141002
  Serious: Yes (Death)
  Sender: FDA-Public Use
  Company Number: PHHY2014MX000673

PATIENT
  Age: 87 Year
  Sex: Male

DRUGS (1)
  1. ONBREZ [Suspect]
     Dosage: 1 DF, QD
     Route: 048

REACTIONS (2)
  - Death [Fatal]
  - Incorrect route of drug administration [Unknown]
